FAERS Safety Report 5888906-8 (Version None)
Quarter: 2008Q3

REPORT INFORMATION
  Report Type: 
  Country: None (occurrence: None)
  Receive Date: 20080919
  Receipt Date: 20080914
  Transmission Date: 20090109
  Serious: Yes (Other)
  Sender: FDA-Public Use
  Company Number: PHHY2008DE18866

PATIENT
  Age: 60 Year
  Sex: Female
  Weight: 53 kg

DRUGS (2)
  1. DIOVAN [Suspect]
     Indication: HYPERTENSION
     Dosage: 80 MG, UNK
     Dates: start: 20080301, end: 20080801
  2. THYROID HORMONES [Concomitant]

REACTIONS (15)
  - ARTHRALGIA [None]
  - CONNECTIVE TISSUE DISORDER [None]
  - DIZZINESS [None]
  - DRY SKIN [None]
  - GENERAL PHYSICAL HEALTH DETERIORATION [None]
  - HUNGER [None]
  - HYPONATRAEMIA [None]
  - MUSCLE SPASMS [None]
  - MUSCULAR WEAKNESS [None]
  - MYALGIA [None]
  - NASOPHARYNGITIS [None]
  - POLYURIA [None]
  - QUALITY OF LIFE DECREASED [None]
  - SKIN WRINKLING [None]
  - WEIGHT DECREASED [None]
